FAERS Safety Report 12074556 (Version 1)
Quarter: 2016Q1

REPORT INFORMATION
  Report Type: Spontaneous
  Country: US (occurrence: US)
  Receive Date: 20160212
  Receipt Date: 20160212
  Transmission Date: 20160526
  Serious: No
  Sender: FDA-Public Use
  Company Number: US-LANTHEUS-LMI-2015-00584

PATIENT
  Age: 18 Year
  Sex: Male
  Weight: 118 kg

DRUGS (3)
  1. ABLAVAR [Suspect]
     Active Substance: GADOFOSVESET TRISODIUM
     Indication: ANGIOGRAM
     Dosage: CONCENTRATED ABLAVAR ADMINISTERED OVER 2 MINUTES
     Route: 040
     Dates: start: 20151022, end: 20151022
  2. XARELTO [Concomitant]
     Active Substance: RIVAROXABAN
     Indication: PRODUCT USED FOR UNKNOWN INDICATION
  3. NEURONTIN [Concomitant]
     Active Substance: GABAPENTIN
     Indication: PRODUCT USED FOR UNKNOWN INDICATION

REACTIONS (5)
  - Vomiting [Recovered/Resolved]
  - Nausea [Recovered/Resolved]
  - Feeling hot [Recovered/Resolved]
  - Eye pruritus [Recovered/Resolved]
  - Erythema [Recovered/Resolved]

NARRATIVE: CASE EVENT DATE: 20151022
